FAERS Safety Report 4422548-6 (Version None)
Quarter: 2004Q3

REPORT INFORMATION
  Report Type: 
  Country: None (occurrence: None)
  Receive Date: 20040810
  Receipt Date: 20040727
  Transmission Date: 20050211
  Serious: Yes (Hospitalization)
  Sender: FDA-Public Use
  Company Number: FR-JNJFOC-20040707245

PATIENT
  Age: 24 Year
  Sex: Female

DRUGS (4)
  1. TOPALGIC [Suspect]
     Route: 049
  2. KETOPROFEN [Suspect]
     Route: 049
  3. ACETAMINOPHEN [Suspect]
     Route: 049
  4. OGAST [Suspect]
     Route: 049

REACTIONS (7)
  - APHASIA [None]
  - CEREBRAL DISORDER [None]
  - CSF TEST ABNORMAL [None]
  - ELECTROENCEPHALOGRAM ABNORMAL [None]
  - HEADACHE [None]
  - INFLAMMATION [None]
  - NUCLEAR MAGNETIC RESONANCE IMAGING ABNORMAL [None]
